FAERS Safety Report 5883696-7 (Version None)
Quarter: 2008Q3

REPORT INFORMATION
  Report Type: 
  Country: None (occurrence: None)
  Receive Date: 20080910
  Receipt Date: 20080828
  Transmission Date: 20090109
  Serious: Yes (Hospitalization)
  Sender: FDA-Public Use
  Company Number: 004185

PATIENT
  Age: 58 Year
  Sex: Male

DRUGS (1)
  1. PLETAL [Suspect]
     Route: 048
     Dates: start: 20070401

REACTIONS (4)
  - CHOREA [None]
  - DIABETES MELLITUS [None]
  - DIABETIC HYPEROSMOLAR COMA [None]
  - VISION BLURRED [None]
